FAERS Safety Report 15305428 (Version 1)
Quarter: 2018Q3

REPORT INFORMATION
  Report Type: Spontaneous
  Country: US (occurrence: US)
  Receive Date: 20180810
  Receipt Date: 20180810
  Transmission Date: 20181010
  Serious: No
  Sender: FDA-Public Use
  Company Number: None

PATIENT
  Age: 7 Year
  Sex: Male
  Weight: 24.9 kg

DRUGS (1)
  1. LEVOTHYROXINE 25MCG [Suspect]
     Active Substance: LEVOTHYROXINE
     Indication: PRIMARY HYPOTHYROIDISM
     Route: 048
     Dates: start: 20160323, end: 20160706

REACTIONS (2)
  - Malabsorption [None]
  - Drug ineffective [None]

NARRATIVE: CASE EVENT DATE: 20161005
